FAERS Safety Report 5829679-4 (Version None)
Quarter: 2008Q3

REPORT INFORMATION
  Report Type: 
  Country: None (occurrence: None)
  Receive Date: 20080801
  Receipt Date: 20080723
  Transmission Date: 20090109
  Serious: Yes (Death, Other)
  Sender: FDA-Public Use
  Company Number: GB-RANBAXY-2008RR-16651

PATIENT

DRUGS (12)
  1. IBUPROFEN TABLETS [Suspect]
     Dosage: UNK
  2. DULOXETINE [Concomitant]
     Indication: DEPRESSION
     Dosage: 60 MG, QD
     Route: 048
     Dates: start: 20080609
  3. ERYTHROMYCIN [Concomitant]
     Indication: LOWER RESPIRATORY TRACT INFECTION
     Dosage: 250 MG, QID
     Route: 048
     Dates: start: 20080529, end: 20080603
  4. FERROUS SULFATE TAB [Concomitant]
     Indication: ANAEMIA
     Dosage: 200 MG, TID
     Route: 047
     Dates: start: 20080418
  5. FLUOXETINE [Concomitant]
     Indication: DEPRESSION
     Dosage: 20 MG, QD
     Route: 048
     Dates: start: 20071128
  6. GABAPENTIN [Concomitant]
     Indication: SCIATICA
     Dosage: 300 MG, TID
     Route: 048
     Dates: start: 20080410
  7. OLANZAPINE [Concomitant]
     Indication: DEPRESSION
     Dosage: 20 MG, UNK
     Route: 048
  8. OMEPRAZOLE [Concomitant]
     Indication: DUODENITIS
     Dosage: 20 MG, QD
     Route: 048
     Dates: start: 20040505
  9. OMEPRAZOLE [Concomitant]
     Indication: GASTRITIS
  10. PARACETAMOL [Concomitant]
     Indication: BACK PAIN
     Dosage: 1 G, PRN
     Route: 048
     Dates: start: 20070511
  11. ALBUTEROL [Concomitant]
     Indication: ASTHMA
     Dosage: 1 DF, PRN
     Route: 055
     Dates: start: 20040106
  12. SERETIDE [Concomitant]
     Indication: ASTHMA
     Dosage: 1 DF, BID
     Route: 055
     Dates: start: 20040505

REACTIONS (2)
  - CEREBROVASCULAR ACCIDENT [None]
  - GASTROINTESTINAL HAEMORRHAGE [None]
